FAERS Safety Report 7272204-4 (Version None)
Quarter: 2011Q1

REPORT INFORMATION
  Report Type: 
  Country: None (occurrence: None)
  Receive Date: 20110203
  Receipt Date: 20110121
  Transmission Date: 20110831
  Serious: Yes (Hospitalization)
  Sender: FDA-Public Use
  Company Number: PHEH2010US01734

PATIENT
  Sex: Female

DRUGS (7)
  1. EXJADE [Suspect]
     Dosage: 1250 MG, QD
     Route: 048
  2. LORTAB [Concomitant]
     Dosage: 10 MG, UNK
  3. COUMADIN [Concomitant]
     Dosage: 3 MG QAM, 7.5 MG PM
  4. EXJADE [Suspect]
     Dosage: 2500 MG, QD
     Route: 048
  5. EXJADE [Suspect]
     Indication: IRON OVERLOAD
     Dosage: 1500 MG, QD
     Route: 048
     Dates: start: 20090201
  6. FOLIC ACID [Concomitant]
     Dosage: 1 MG, UNK
  7. DILAUDID [Concomitant]
     Dosage: 4 MG, PRN
     Dates: start: 20091201

REACTIONS (6)
  - MALAISE [None]
  - PAIN IN EXTREMITY [None]
  - DYSURIA [None]
  - SICKLE CELL ANAEMIA WITH CRISIS [None]
  - BACK PAIN [None]
  - PAIN [None]
